FAERS Safety Report 23951906 (Version 1)
Quarter: 2024Q2

REPORT INFORMATION
  Report Type: Spontaneous
  Country: US (occurrence: US)
  Receive Date: 20240607
  Receipt Date: 20240607
  Transmission Date: 20240716
  Serious: Yes (Hospitalization, Other)
  Sender: FDA-Public Use
  Company Number: US-DRL-USA-LIT/USA/24/0007976

PATIENT
  Age: 77 Year
  Sex: Female

DRUGS (2)
  1. DAPTOMYCIN [Suspect]
     Active Substance: DAPTOMYCIN
     Indication: Prosthetic valve endocarditis
  2. AMPICILLIN [Suspect]
     Active Substance: AMPICILLIN
     Indication: Prosthetic valve endocarditis

REACTIONS (2)
  - Drug ineffective for unapproved indication [Unknown]
  - Condition aggravated [Recovered/Resolved]
